FAERS Safety Report 9868613 (Version 1)
Quarter: 2014Q1

REPORT INFORMATION
  Report Type: Spontaneous
  Country: TR (occurrence: TR)
  Receive Date: 20140204
  Receipt Date: 20140204
  Transmission Date: 20141002
  Serious: Yes (Hospitalization, Other)
  Sender: FDA-Public Use
  Company Number: PHHY2014TR010945

PATIENT
  Age: 17 Year
  Sex: Female

DRUGS (2)
  1. ISONIAZID [Suspect]
  2. PHENYTOIN [Interacting]
     Indication: CONVULSION

REACTIONS (18)
  - Toxicity to various agents [Unknown]
  - Blood potassium decreased [Recovering/Resolving]
  - Heart rate increased [Recovering/Resolving]
  - Lethargy [Unknown]
  - Extensor plantar response [Recovering/Resolving]
  - Hyperglycaemia [Recovering/Resolving]
  - Leukocytosis [Recovering/Resolving]
  - Blood creatine phosphokinase increased [Recovering/Resolving]
  - Metabolic acidosis [Recovering/Resolving]
  - Coma [Recovering/Resolving]
  - Loss of consciousness [Recovering/Resolving]
  - Dyskinesia [Unknown]
  - Grand mal convulsion [Recovered/Resolved]
  - Status epilepticus [Recovered/Resolved]
  - Hepatic enzyme increased [Recovering/Resolving]
  - Suicide attempt [Unknown]
  - Drug interaction [Unknown]
  - Drug ineffective [Unknown]
